FAERS Safety Report 8780209 (Version 1)
Quarter: 2012Q4

REPORT INFORMATION
  Report Type: Spontaneous
  Country: US (occurrence: None)
  Receive Date: 20120904
  Receipt Date: 20120904
  Transmission Date: 20130627
  Serious: Yes (Other)
  Sender: FDA-Public Use
  Company Number: None

PATIENT
  Age: 44 Year
  Sex: Female
  Weight: 50.8 kg

DRUGS (2)
  1. BOTOX [Suspect]
     Route: 030
     Dates: start: 20120525, end: 20120525
  2. BOTOX [Suspect]

REACTIONS (3)
  - Overdose [None]
  - Eyelid ptosis [None]
  - Unevaluable event [None]
